FAERS Safety Report 6295961-2 (Version None)
Quarter: 2009Q3

REPORT INFORMATION
  Report Type: 
  Country: None (occurrence: None)
  Receive Date: 20090804
  Receipt Date: 20090728
  Transmission Date: 20100115
  Serious: Yes (Hospitalization, Other)
  Sender: FDA-Public Use
  Company Number: FR-ASTRAZENECA-2001CG00625

PATIENT
  Age: 70 Year
  Sex: Female
  Weight: 61 kg

DRUGS (5)
  1. ARIMIDEX [Suspect]
     Indication: BREAST CANCER
     Route: 048
     Dates: start: 19971024
  2. VASTEN [Concomitant]
     Indication: HYPERCHOLESTEROLAEMIA
     Route: 048
  3. PIASCLEDINE [Concomitant]
     Route: 048
  4. LANZOR [Concomitant]
     Indication: HIATUS HERNIA
     Route: 048
  5. RHEOFLUX [Concomitant]
     Indication: PROPHYLAXIS
     Route: 048

REACTIONS (1)
  - METRORRHAGIA [None]
